FAERS Safety Report 14701509 (Version 6)
Quarter: 2018Q4

REPORT INFORMATION
  Report Type: Report from Study
  Country: US (occurrence: US)
  Receive Date: 20180330
  Receipt Date: 20181122
  Transmission Date: 20190204
  Serious: Yes (Other)
  Sender: FDA-Public Use
  Company Number: PHEH2018US012332

PATIENT
  Sex: Female

DRUGS (2)
  1. COSENTYX [Suspect]
     Active Substance: SECUKINUMAB
     Dosage: 300 MG, QMO
     Route: 058
     Dates: start: 201802
  2. COSENTYX [Suspect]
     Active Substance: SECUKINUMAB
     Indication: PSORIASIS
     Dosage: 300 MG, QMO
     Route: 058
     Dates: start: 201712

REACTIONS (11)
  - Oophoritis [Unknown]
  - Injection site reaction [Unknown]
  - Rash [Unknown]
  - Swelling of eyelid [Unknown]
  - Diarrhoea [Unknown]
  - Cough [Unknown]
  - Paraesthesia [Unknown]
  - Productive cough [Unknown]
  - Psoriasis [Unknown]
  - Pruritus generalised [Unknown]
  - Sciatica [Unknown]
